FAERS Safety Report 10809450 (Version 1)
Quarter: 2015Q1

REPORT INFORMATION
  Report Type: Spontaneous
  Country: US (occurrence: None)
  Receive Date: 20150212
  Receipt Date: 20150212
  Transmission Date: 20150721
  Serious: No
  Sender: FDA-Public Use
  Company Number: None

PATIENT
  Age: 62 Year
  Sex: Male

DRUGS (1)
  1. SUTENT [Suspect]
     Active Substance: SUNITINIB MALATE
     Indication: RENAL CANCER
     Dosage: 37.5 DAILY FOR 4 WEEKS THEN 2 WEEKS OFF
     Route: 048
     Dates: start: 2012

REACTIONS (6)
  - Constipation [None]
  - Erythema [None]
  - Hypertension [None]
  - Ocular hyperaemia [None]
  - Gingivitis [None]
  - Hair colour changes [None]
